FAERS Safety Report 12943420 (Version 1)
Quarter: 2016Q4

REPORT INFORMATION
  Report Type: Spontaneous
  Country: JP (occurrence: JP)
  Receive Date: 20161115
  Receipt Date: 20161115
  Transmission Date: 20170207
  Serious: Yes (Other)
  Sender: FDA-Public Use
  Company Number: JP-ELI_LILLY_AND_COMPANY-JP201611003253

PATIENT
  Age: 68 Year
  Sex: Male

DRUGS (2)
  1. DOCETAXEL. [Concomitant]
     Active Substance: DOCETAXEL
     Indication: LARGE CELL LUNG CANCER RECURRENT
     Dosage: 60 MG/M2, UNK
     Route: 042
     Dates: start: 20160908
  2. CYRAMZA [Suspect]
     Active Substance: RAMUCIRUMAB
     Indication: LARGE CELL LUNG CANCER RECURRENT
     Dosage: 10 MG/KG, UNK
     Route: 042
     Dates: start: 20160908

REACTIONS (5)
  - Stomatitis [Unknown]
  - Hypoaesthesia [Unknown]
  - Arthralgia [Unknown]
  - Febrile neutropenia [Unknown]
  - Decreased appetite [Unknown]
